FAERS Safety Report 25035196 (Version 1)
Quarter: 2025Q1

REPORT INFORMATION
  Report Type: Spontaneous
  Country: FR (occurrence: FR)
  Receive Date: 20250304
  Receipt Date: 20250304
  Transmission Date: 20250409
  Serious: Yes (Other)
  Sender: RANBAXY
  Company Number: FR-SUN PHARMACEUTICAL INDUSTRIES LTD-2025RR-497566

PATIENT
  Age: 67 Year
  Sex: Female
  Weight: 75 kg

DRUGS (1)
  1. ATORVASTATIN [Suspect]
     Active Substance: ATORVASTATIN
     Indication: Hypercholesterolaemia
     Dosage: 80MG/DAY
     Route: 048
     Dates: start: 202403, end: 20240611

REACTIONS (1)
  - Mixed liver injury [Recovering/Resolving]

NARRATIVE: CASE EVENT DATE: 20240611
